FAERS Safety Report 5248013-4 (Version None)
Quarter: 2007Q1

REPORT INFORMATION
  Report Type: 
  Country: None (occurrence: None)
  Receive Date: 20070222
  Receipt Date: 20070214
  Transmission Date: 20070707
  Serious: Yes (Life-Threatening, Hospitalization)
  Sender: FDA-Public Use
  Company Number: 2007-154526-NL

PATIENT
  Age: 32 Year
  Sex: Female

DRUGS (1)
  1. NUVARING [Suspect]
     Indication: AMENORRHOEA
     Dosage: DF VAGINAL
     Route: 067
     Dates: start: 20040405, end: 20070124

REACTIONS (2)
  - CHOLELITHIASIS [None]
  - PULMONARY EMBOLISM [None]
